FAERS Safety Report 25188394 (Version 2)
Quarter: 2025Q2

REPORT INFORMATION
  Report Type: Spontaneous
  Country: US (occurrence: US)
  Receive Date: 20250411
  Receipt Date: 20250506
  Transmission Date: 20250716
  Serious: Yes (Hospitalization, Other)
  Sender: ALEMBIC
  Company Number: US-ALEMBIC PHARMACUETICALS LIMITED-2025SCAL000322

PATIENT

DRUGS (4)
  1. PACLITAXEL [Suspect]
     Active Substance: PACLITAXEL
     Indication: Adenosquamous carcinoma of the cervix
     Route: 065
  2. BEVACIZUMAB [Suspect]
     Active Substance: BEVACIZUMAB
     Indication: Adenosquamous carcinoma of the cervix
     Route: 065
  3. CARBOPLATIN [Suspect]
     Active Substance: CARBOPLATIN
     Indication: Adenosquamous carcinoma of the cervix
     Route: 065
  4. PEMBROLIZUMAB [Suspect]
     Active Substance: PEMBROLIZUMAB
     Indication: Adenosquamous carcinoma of the cervix
     Route: 065

REACTIONS (11)
  - Intestinal ischaemia [Recovering/Resolving]
  - Diarrhoea [Recovering/Resolving]
  - Rectal haemorrhage [Recovering/Resolving]
  - Abdominal tenderness [Recovering/Resolving]
  - Rectal perforation [Recovering/Resolving]
  - Proctitis [Recovering/Resolving]
  - Abdominal abscess [Recovering/Resolving]
  - Female genital tract fistula [Recovering/Resolving]
  - Toxicity to various agents [Recovering/Resolving]
  - Pelvic abscess [Recovering/Resolving]
  - Anaemia [Recovering/Resolving]
